FAERS Safety Report 6735868-7 (Version None)
Quarter: 2010Q2

REPORT INFORMATION
  Report Type: 
  Country: None (occurrence: None)
  Receive Date: 20100521
  Receipt Date: 20100514
  Transmission Date: 20101027
  Serious: Yes (Other)
  Sender: FDA-Public Use
  Company Number: A0859766A

PATIENT
  Age: 50 Year
  Sex: Male

DRUGS (6)
  1. CARVEDILOL [Suspect]
     Dosage: 12.5MG TWICE PER DAY
     Route: 048
     Dates: start: 20100101, end: 20100101
  2. COREG [Suspect]
     Dosage: 12.5MG TWICE PER DAY
     Route: 048
     Dates: start: 20080101, end: 20100101
  3. ZETIA [Concomitant]
  4. PLAVIX [Concomitant]
  5. BLOOD PRESSURE MEDICATION [Concomitant]
  6. LOVASTATIN [Concomitant]

REACTIONS (5)
  - DRY MOUTH [None]
  - FAECES DISCOLOURED [None]
  - FATIGUE [None]
  - NAUSEA [None]
  - NIGHT BLINDNESS [None]
